FAERS Safety Report 25508317 (Version 1)
Quarter: 2025Q3

REPORT INFORMATION
  Report Type: Report from Study
  Country: US (occurrence: US)
  Receive Date: 20250703
  Receipt Date: 20250703
  Transmission Date: 20251021
  Serious: Yes (Other)
  Sender: ABBVIE
  Company Number: US-ABBVIE-6352264

PATIENT
  Age: 49 Year
  Sex: Female

DRUGS (1)
  1. RINVOQ [Suspect]
     Active Substance: UPADACITINIB
     Indication: Rheumatoid arthritis
     Dosage: 15MG
     Route: 048
     Dates: end: 20250627

REACTIONS (8)
  - Loss of consciousness [Unknown]
  - Aphasia [Unknown]
  - Fatigue [Not Recovered/Not Resolved]
  - Feeling drunk [Not Recovered/Not Resolved]
  - Fall [Unknown]
  - Limb injury [Unknown]
  - Nervous system disorder [Unknown]
  - Feeling abnormal [Not Recovered/Not Resolved]

NARRATIVE: CASE EVENT DATE: 20250627
